FAERS Safety Report 6348879-0 (Version None)
Quarter: 2009Q3

REPORT INFORMATION
  Report Type: 
  Country: None (occurrence: None)
  Receive Date: 20090911
  Receipt Date: 20090901
  Transmission Date: 20100115
  Serious: Yes (Other)
  Sender: FDA-Public Use
  Company Number: GB-PFIZER INC-2009262271

PATIENT
  Age: 33 Year

DRUGS (4)
  1. CHAMPIX [Suspect]
     Dosage: UNK
     Route: 048
     Dates: start: 20090812
  2. DIAZEPAM [Concomitant]
     Indication: PROPHYLAXIS
     Dosage: 5 MG, AS NEEDED
     Route: 048
  3. DIAZEPAM [Concomitant]
     Indication: MENTAL DISORDER
  4. IMPLANON [Concomitant]
     Indication: CONTRACEPTION
     Dosage: UNK
     Route: 058

REACTIONS (1)
  - BILIARY COLIC [None]
